FAERS Safety Report 16632820 (Version 1)
Quarter: 2019Q3

REPORT INFORMATION
  Report Type: Spontaneous
  Country: FR (occurrence: FR)
  Receive Date: 20190725
  Receipt Date: 20190725
  Transmission Date: 20191004
  Serious: Yes (Hospitalization, Other)
  Sender: FDA-Public Use
  Company Number: FR-MYLANLABS-2019M1068482

PATIENT
  Age: 38 Year
  Sex: Female
  Weight: 75 kg

DRUGS (2)
  1. TRANEXAMIC ACID. [Suspect]
     Active Substance: TRANEXAMIC ACID
     Indication: PRODUCT USED FOR UNKNOWN INDICATION
     Dosage: 1 GRAM
     Route: 041
     Dates: start: 20190109, end: 20190109
  2. EPHEDRINE AGUETTANT [Suspect]
     Active Substance: EPHEDRINE
     Indication: CAESAREAN SECTION
     Dosage: 9 MILLIGRAM
     Route: 041
     Dates: start: 20190109, end: 20190109

REACTIONS (6)
  - Cerebral haematoma [Recovering/Resolving]
  - Subarachnoid haemorrhage [Recovering/Resolving]
  - Headache [Recovered/Resolved]
  - Hypertension [Recovering/Resolving]
  - Reversible cerebral vasoconstriction syndrome [Recovering/Resolving]
  - Vomiting [Recovering/Resolving]

NARRATIVE: CASE EVENT DATE: 20190113
